FAERS Safety Report 7692725-X (Version None)
Quarter: 2011Q3

REPORT INFORMATION
  Report Type: 
  Country: None (occurrence: None)
  Receive Date: 20110819
  Receipt Date: 20110815
  Transmission Date: 20111222
  Serious: No
  Sender: FDA-Public Use
  Company Number: US-PFIZER INC-2011182454

PATIENT
  Sex: Male
  Weight: 140.59 kg

DRUGS (11)
  1. FUROSEMIDE [Concomitant]
     Dosage: UNK
  2. WARFARIN [Concomitant]
     Dosage: UNK
  3. ATENOLOL [Concomitant]
     Indication: CARDIAC DISORDER
     Dosage: UNK
  4. POTASSIUM [Concomitant]
     Dosage: UNK
  5. SIMVASTATIN [Concomitant]
     Dosage: UNK
  6. FOLIC ACID [Concomitant]
     Dosage: UNK
  7. VIAGRA [Suspect]
     Indication: ERECTILE DYSFUNCTION
     Dosage: 100 MG, AS NEEDED
     Route: 048
     Dates: start: 20100101
  8. ACETYLSALICYLIC ACID [Concomitant]
     Dosage: UNK
  9. PHENYTOIN [Suspect]
     Dosage: UNK
  10. OMEPRAZOLE [Concomitant]
     Indication: GASTROOESOPHAGEAL REFLUX DISEASE
     Dosage: UNK
  11. LISINOPRIL [Concomitant]
     Dosage: UNK

REACTIONS (1)
  - DRUG EFFECT DECREASED [None]
